FAERS Safety Report 6445477-5 (Version None)
Quarter: 2009Q4

REPORT INFORMATION
  Report Type: 
  Country: None (occurrence: None)
  Receive Date: 20091110
  Receipt Date: 20090914
  Transmission Date: 20100525
  Serious: No
  Sender: FDA-Public Use
  Company Number: 1000007994

PATIENT
  Age: 66 Year
  Sex: Female

DRUGS (8)
  1. SAVELLA [Suspect]
     Indication: FIBROMYALGIA
     Dosage: 100 MG (50 MG, 2 IN 1 D), ORAL
     Route: 048
     Dates: start: 20090618, end: 20090101
  2. NEURONTIN [Concomitant]
  3. TRAZODONE HCL [Concomitant]
  4. MOBIC [Concomitant]
  5. NEXIUM [Concomitant]
  6. AMBIEN [Concomitant]
  7. LIDODERM [Concomitant]
  8. ZOCOR [Concomitant]

REACTIONS (2)
  - HEART RATE INCREASED [None]
  - PALPITATIONS [None]
